FAERS Safety Report 6912770-9 (Version None)
Quarter: 2010Q3

REPORT INFORMATION
  Report Type: 
  Country: None (occurrence: None)
  Receive Date: 20100806
  Receipt Date: 20081121
  Transmission Date: 20110219
  Serious: No
  Sender: FDA-Public Use
  Company Number: US-PFIZER INC-2006020598

PATIENT
  Sex: Female

DRUGS (1)
  1. DETROL LA [Suspect]
     Route: 065

REACTIONS (6)
  - CIRCUMSTANCE OR INFORMATION CAPABLE OF LEADING TO MEDICATION ERROR [None]
  - DARK CIRCLES UNDER EYES [None]
  - FEAR [None]
  - INSOMNIA [None]
  - POLLAKIURIA [None]
  - UNEVALUABLE EVENT [None]
